FAERS Safety Report 21531644 (Version 1)
Quarter: 2022Q4

REPORT INFORMATION
  Report Type: Spontaneous
  Country: ES (occurrence: ES)
  Receive Date: 20221031
  Receipt Date: 20221031
  Transmission Date: 20230113
  Serious: Yes (Other)
  Sender: FDA-Public Use
  Company Number: ES-AMGEN-ESPSP2022184353

PATIENT
  Age: 59 Year
  Sex: Female

DRUGS (3)
  1. APREMILAST [Suspect]
     Active Substance: APREMILAST
     Indication: Psoriasis
     Dosage: 1 DOSAGE FORM, Q12H
     Route: 065
     Dates: start: 201807
  2. APREMILAST [Suspect]
     Active Substance: APREMILAST
     Dosage: 1 DOSAGE FORM EVERY 24 HOUR
     Route: 065
     Dates: start: 2019
  3. APREMILAST [Suspect]
     Active Substance: APREMILAST
     Dosage: 1 DOSAGE FORM, Q12H
     Route: 065

REACTIONS (2)
  - Psoriatic arthropathy [Recovering/Resolving]
  - Off label use [Unknown]

NARRATIVE: CASE EVENT DATE: 20190101
